FAERS Safety Report 8741461 (Version 4)
Quarter: 2015Q1

REPORT INFORMATION
  Report Type: Spontaneous
  Country: US (occurrence: US)
  Receive Date: 20120824
  Receipt Date: 20150125
  Transmission Date: 20150721
  Serious: No
  Sender: FDA-Public Use
  Company Number: US-ASTRAZENECA-2012SE06054

PATIENT
  Age: 536 Month
  Sex: Female
  Weight: 81.6 kg

DRUGS (2)
  1. SYMBICORT [Suspect]
     Active Substance: BUDESONIDE\FORMOTEROL FUMARATE DIHYDRATE
     Indication: ASTHMA
     Dosage: 160/4.5 MCG, UNKNOWN
     Route: 055
     Dates: end: 201410
  2. SYMBICORT [Suspect]
     Active Substance: BUDESONIDE\FORMOTEROL FUMARATE DIHYDRATE
     Indication: ASTHMA
     Dosage: 80/4.5 MCG, 2 PUFFS BID
     Route: 055
     Dates: start: 2011, end: 201311

REACTIONS (6)
  - Asthma [Recovered/Resolved]
  - Intentional product misuse [Not Recovered/Not Resolved]
  - Drug dose omission [Not Recovered/Not Resolved]
  - Feeling abnormal [Unknown]
  - Chest discomfort [Unknown]
  - Dyspnoea [Not Recovered/Not Resolved]

NARRATIVE: CASE EVENT DATE: 201311
